APPROVED DRUG PRODUCT: OLANZAPINE
Active Ingredient: OLANZAPINE
Strength: 10MG
Dosage Form/Route: TABLET, ORALLY DISINTEGRATING;ORAL
Application: A202889 | Product #002
Applicant: ZYDUS PHARMACEUTICALS USA INC
Approved: Mar 9, 2023 | RLD: No | RS: No | Type: DISCN